FAERS Safety Report 7639173-6 (Version None)
Quarter: 2011Q3

REPORT INFORMATION
  Report Type: 
  Country: None (occurrence: None)
  Receive Date: 20110727
  Receipt Date: 20110721
  Transmission Date: 20111222
  Serious: Yes (Other)
  Sender: FDA-Public Use
  Company Number: HU-PFIZER INC-2011166490

PATIENT
  Age: 56 Year
  Sex: Male
  Weight: 80 kg

DRUGS (4)
  1. XANAX [Concomitant]
     Dosage: UNK
  2. LYRICA [Suspect]
     Dosage: 150 MG, 1X/DAY
     Dates: end: 20110708
  3. LYRICA [Suspect]
     Dosage: 75 MG, 2X/DAY
     Dates: start: 20110601
  4. METOPROLOL [Concomitant]
     Dosage: UNK

REACTIONS (4)
  - EYE INJURY [None]
  - SKELETAL INJURY [None]
  - FALL [None]
  - DIZZINESS [None]
